FAERS Safety Report 14564559 (Version 2)
Quarter: 2018Q2

REPORT INFORMATION
  Report Type: Spontaneous
  Country: US (occurrence: US)
  Receive Date: 20180222
  Receipt Date: 20180413
  Transmission Date: 20180711
  Serious: Yes (Hospitalization)
  Sender: FDA-Public Use
  Company Number: US-SEATTLE GENETICS-2018SGN00327

PATIENT
  Age: 67 Year
  Sex: Male

DRUGS (15)
  1. COMPAZINE                          /00013302/ [Concomitant]
     Active Substance: PROCHLORPERAZINE EDISYLATE
     Indication: NAUSEA
     Dosage: 10 MG EVERY 6 HOURS AS NEEDED
     Route: 048
     Dates: start: 20180130
  2. COMPAZINE                          /00013302/ [Concomitant]
     Active Substance: PROCHLORPERAZINE EDISYLATE
     Indication: VOMITING
  3. BACTRIM DS [Concomitant]
     Active Substance: SULFAMETHOXAZOLE\TRIMETHOPRIM
     Dosage: 800-160 MG TABLET; 1 TAB TWO TIMES DAILY, 3 TIMES A WEEK
     Route: 048
     Dates: start: 20180131
  4. COMBIVENT [Concomitant]
     Active Substance: ALBUTEROL SULFATE\IPRATROPIUM BROMIDE
     Dosage: 20-100 MCG/ACTUATION; 1 PUFF 4 TIMES DAILY
     Route: 055
  5. DUONEB [Concomitant]
     Active Substance: ALBUTEROL SULFATE\IPRATROPIUM BROMIDE
     Dosage: 0.5 MG-3 MG (2.5 MG/3ML) INHALE 3 MLS EVERY 6 HOURS AS NEEDED
     Route: 055
  6. ADCETRIS [Suspect]
     Active Substance: BRENTUXIMAB VEDOTIN
     Indication: T-CELL LYMPHOMA
     Dosage: 170 MG, Q3WEEKS
     Route: 042
     Dates: start: 20180131, end: 20180131
  7. PULMICORT TURBUHALER [Concomitant]
     Active Substance: BUDESONIDE
     Dosage: 90 MCG/ACTUATION; 2 PUFFS 2 TIMES DAILY
     Route: 055
  8. OMEGA-3 FATTY ACIDS W/VITAMIN E NOS [Concomitant]
     Dosage: 1 DF, QD
     Route: 048
     Dates: end: 20180319
  9. ZOFRAN [Concomitant]
     Active Substance: ONDANSETRON HYDROCHLORIDE
     Indication: VOMITING
  10. ZOVIRAX [Concomitant]
     Active Substance: ACYCLOVIR
     Dosage: 400 MG, BID
     Route: 048
     Dates: start: 20180130, end: 20180301
  11. ZETIA [Concomitant]
     Active Substance: EZETIMIBE
     Dosage: 10 MG, UNK
     Route: 048
     Dates: end: 20180227
  12. ZYPREXA [Concomitant]
     Active Substance: OLANZAPINE
     Dosage: 1-2 TABLETS (5-10 MG) NIGHTLY AS NEEDED
     Route: 048
     Dates: start: 20180130
  13. ZYLOPRIM [Concomitant]
     Active Substance: ALLOPURINOL
     Dosage: 300 MG, ALTERNATE 1 ONE DAY AND 2 THE NEXT
     Route: 048
  14. ZOFRAN [Concomitant]
     Active Substance: ONDANSETRON HYDROCHLORIDE
     Indication: NAUSEA
     Dosage: 1-2 TABLETS (4-8 MG) EVERY 6 HOURS AS NEEDED
     Route: 048
     Dates: start: 20180130
  15. PRAVACHOL [Concomitant]
     Active Substance: PRAVASTATIN SODIUM
     Dosage: 40 MG, QD
     Route: 048
     Dates: end: 20180221

REACTIONS (1)
  - Hyperglycaemia [Recovered/Resolved]

NARRATIVE: CASE EVENT DATE: 20180212
